FAERS Safety Report 17688240 (Version 1)
Quarter: 2020Q2

REPORT INFORMATION
  Report Type: Spontaneous
  Country: US (occurrence: US)
  Receive Date: 20200420
  Receipt Date: 20200420
  Transmission Date: 20200714
  Serious: Yes (Death)
  Sender: FDA-Public Use
  Company Number: None

PATIENT
  Age: 59 Year
  Sex: Female
  Weight: 74.25 kg

DRUGS (11)
  1. CARBOPLATIN. [Concomitant]
     Active Substance: CARBOPLATIN
  2. SERTRALINE [Concomitant]
     Active Substance: SERTRALINE HYDROCHLORIDE
  3. KEYTRUDA [Concomitant]
     Active Substance: PEMBROLIZUMAB
  4. ACETAMINOPHEN. [Concomitant]
     Active Substance: ACETAMINOPHEN
  5. GEMCITABINE. [Suspect]
     Active Substance: GEMCITABINE
     Indication: LUNG NEOPLASM MALIGNANT
     Dates: start: 20190826, end: 20200420
  6. PALONOSETRON. [Concomitant]
     Active Substance: PALONOSETRON HYDROCHLORIDE
  7. FOLIC ACID. [Concomitant]
     Active Substance: FOLIC ACID
  8. OMEGA 3 [Concomitant]
     Active Substance: OMEGA-3 FATTY ACIDS
  9. ALIMTA [Concomitant]
     Active Substance: PEMETREXED DISODIUM
  10. ONDANSETRON [Concomitant]
     Active Substance: ONDANSETRON
  11. DEXAMETHASONE. [Concomitant]
     Active Substance: DEXAMETHASONE

REACTIONS (1)
  - Death [None]

NARRATIVE: CASE EVENT DATE: 20200420
